FAERS Safety Report 7739274-8 (Version None)
Quarter: 2011Q3

REPORT INFORMATION
  Report Type: 
  Country: None (occurrence: None)
  Receive Date: 20110909
  Receipt Date: 20110831
  Transmission Date: 20111222
  Serious: Yes (Hospitalization, Other)
  Sender: FDA-Public Use
  Company Number: DE-JNJFOC-20110900582

PATIENT
  Age: 65 Year
  Sex: Male

DRUGS (3)
  1. LEVOFLOXACIN [Suspect]
     Indication: URINARY TRACT INFECTION
     Route: 048
     Dates: start: 20110519, end: 20110525
  2. OTHER ANTIBIOTICS [Concomitant]
     Route: 065
  3. LEVOFLOXACIN [Suspect]
     Indication: PROSTATITIS
     Route: 048
     Dates: start: 20110519, end: 20110525

REACTIONS (5)
  - CLAVICLE FRACTURE [None]
  - TENDONITIS [None]
  - TENDON DISORDER [None]
  - HEADACHE [None]
  - TENDON PAIN [None]
